FAERS Safety Report 12830002 (Version 1)
Quarter: 2016Q4

REPORT INFORMATION
  Report Type: Spontaneous
  Country: US (occurrence: US)
  Receive Date: 20161007
  Receipt Date: 20161007
  Transmission Date: 20170207
  Serious: No
  Sender: FDA-Public Use
  Company Number: US-SA-2016SA139378

PATIENT
  Age: 56 Year
  Sex: Female

DRUGS (8)
  1. DIVALPROEX SODIUM. [Concomitant]
     Active Substance: DIVALPROEX SODIUM
  2. ZOCOR [Concomitant]
     Active Substance: SIMVASTATIN
  3. AUBAGIO [Suspect]
     Active Substance: TERIFLUNOMIDE
     Indication: MULTIPLE SCLEROSIS
     Route: 048
     Dates: start: 201605
  4. MORPHINE [Concomitant]
     Active Substance: MORPHINE
  5. BACLOFEN. [Concomitant]
     Active Substance: BACLOFEN
  6. VITAMIN D2 [Concomitant]
     Active Substance: ERGOCALCIFEROL
  7. MAXALT-MLT [Concomitant]
     Active Substance: RIZATRIPTAN BENZOATE
  8. DETROL LA [Concomitant]
     Active Substance: TOLTERODINE TARTRATE

REACTIONS (2)
  - Alopecia [Unknown]
  - Alopecia [Unknown]

NARRATIVE: CASE EVENT DATE: 201607
